FAERS Safety Report 16730421 (Version 1)
Quarter: 2019Q4

REPORT INFORMATION
  Report Type: Spontaneous
  Country: US (occurrence: US)
  Receive Date: 20190821
  Receipt Date: 20190821
  Transmission Date: 20200122
  Serious: Yes (Hospitalization)
  Sender: FDA-Public Use
  Company Number: None

PATIENT
  Age: 89 Year
  Sex: Female
  Weight: 56.25 kg

DRUGS (5)
  1. MIRTAZAPINE. [Concomitant]
     Active Substance: MIRTAZAPINE
  2. WOMEN^S MULTIVITAMIN [Concomitant]
  3. CALCIUM CARBONATE. [Concomitant]
     Active Substance: CALCIUM CARBONATE
  4. CALCIUM [Concomitant]
     Active Substance: CALCIUM
  5. ELIQUIS [Suspect]
     Active Substance: APIXABAN
     Indication: DEEP VEIN THROMBOSIS
     Dosage: ?          QUANTITY:1 TABLET(S);?
     Route: 048
     Dates: start: 20190608, end: 20190715

REACTIONS (3)
  - Gastric haemorrhage [None]
  - Urosepsis [None]
  - Unresponsive to stimuli [None]

NARRATIVE: CASE EVENT DATE: 20190716
